FAERS Safety Report 7339881-0 (Version None)
Quarter: 2011Q1

REPORT INFORMATION
  Report Type: 
  Country: None (occurrence: None)
  Receive Date: 20110304
  Receipt Date: 20110304
  Transmission Date: 20110831
  Serious: Yes (Death, Hospitalization, Other)
  Sender: FDA-Public Use
  Company Number: None

PATIENT
  Age: 67 Year
  Sex: Male

DRUGS (9)
  1. IPRATROPIUM BROMIDE [Concomitant]
  2. FLUOXETINE [Concomitant]
  3. HYDROCODONE BITARTRATE + ACETAMINOPHEN [Concomitant]
  4. OMEPRAZO [Concomitant]
  5. FLUTICASONE NASL SPRAY [Concomitant]
  6. TERAZOSIN HCL [Concomitant]
  7. REVLIMID [Suspect]
     Indication: MYELOFIBROSIS
     Dosage: 5 MG EVERY OTHER DAY ORALLY
     Route: 048
     Dates: start: 20091001, end: 20110201
  8. QVAR 40 [Concomitant]
  9. PROAIR HFA [Concomitant]

REACTIONS (7)
  - PANCYTOPENIA [None]
  - OXYGEN SATURATION DECREASED [None]
  - DYSPNOEA [None]
  - CONTUSION [None]
  - SUBCUTANEOUS EMPHYSEMA [None]
  - PNEUMOTHORAX [None]
  - FALL [None]
